FAERS Safety Report 12051963 (Version 1)
Quarter: 2016Q1

REPORT INFORMATION
  Report Type: Spontaneous
  Country: US (occurrence: None)
  Receive Date: 20160208
  Receipt Date: 20160208
  Transmission Date: 20160526
  Serious: Yes (Other)
  Sender: FDA-Public Use
  Company Number: None

PATIENT
  Age: 69 Year
  Sex: Female

DRUGS (6)
  1. TRAZODONE [Concomitant]
     Active Substance: TRAZODONE HYDROCHLORIDE
  2. COZAAR [Concomitant]
     Active Substance: LOSARTAN POTASSIUM
  3. DICLOFENAC [Concomitant]
     Active Substance: DICLOFENAC
  4. DULOXETINE 60MG CITRON [Suspect]
     Active Substance: DULOXETINE
     Indication: ARTHRITIS
     Dosage: 1 QD ORAL
     Route: 048
     Dates: start: 20151210, end: 20160127
  5. ZOCOR [Concomitant]
     Active Substance: SIMVASTATIN
  6. DULOXETINE 60MG CITRON [Suspect]
     Active Substance: DULOXETINE
     Indication: DEPRESSION
     Dosage: 1 QD ORAL
     Route: 048
     Dates: start: 20151210, end: 20160127

REACTIONS (3)
  - Anxiety [None]
  - Depression [None]
  - Drug ineffective [None]

NARRATIVE: CASE EVENT DATE: 20151227
